FAERS Safety Report 4543924-7 (Version None)
Quarter: 2005Q1

REPORT INFORMATION
  Report Type: 
  Country: None (occurrence: None)
  Receive Date: 20050103
  Receipt Date: 20040322
  Transmission Date: 20050727
  Serious: Yes (Other)
  Sender: FDA-Public Use
  Company Number: GXKR2004GB00525

PATIENT
  Sex: Female

DRUGS (1)
  1. METRONIDAZOLE [Suspect]
     Dosage: 1 TABLET, TID, ORAL
     Route: 048
     Dates: start: 20040306, end: 20040306

REACTIONS (3)
  - CHEST DISCOMFORT [None]
  - EMOTIONAL DISTRESS [None]
  - RASH [None]
